FAERS Safety Report 19062432 (Version 1)
Quarter: 2021Q1

REPORT INFORMATION
  Report Type: Spontaneous
  Country: US (occurrence: US)
  Receive Date: 20210326
  Receipt Date: 20210326
  Transmission Date: 20210420
  Serious: Yes (Hospitalization)
  Sender: FDA-Public Use
  Company Number: None

PATIENT
  Sex: Female

DRUGS (2)
  1. DEFERASIROX. [Suspect]
     Active Substance: DEFERASIROX
     Indication: MYELODYSPLASTIC SYNDROME
     Route: 048
     Dates: start: 20210313, end: 20210313
  2. DEFERASIROX. [Suspect]
     Active Substance: DEFERASIROX
     Indication: MYELODYSPLASTIC SYNDROME
     Route: 048
     Dates: start: 20210313, end: 20210313

REACTIONS (11)
  - Nonspecific reaction [None]
  - Chills [None]
  - Tremor [None]
  - Motor dysfunction [None]
  - Arthralgia [None]
  - Peripheral swelling [None]
  - Somnolence [None]
  - Feeling abnormal [None]
  - Pain [None]
  - Drug ineffective [None]
  - Serum ferritin increased [None]
